FAERS Safety Report 8242924-3 (Version None)
Quarter: 2012Q1

REPORT INFORMATION
  Report Type: 
  Country: None (occurrence: None)
  Receive Date: 20120329
  Receipt Date: 20120329
  Transmission Date: 20120608
  Serious: Yes (Other)
  Sender: FDA-Public Use
  Company Number: None

PATIENT
  Sex: Female
  Weight: 69.853 kg

DRUGS (4)
  1. ENBREL [Suspect]
     Indication: RHEUMATOID ARTHRITIS
     Dosage: 25 MG
     Route: 058
     Dates: start: 20030201, end: 20110301
  2. METHOTREXATE [Concomitant]
  3. SULFASALAZINE [Concomitant]
  4. GOLD [Concomitant]
     Route: 030

REACTIONS (1)
  - MALIGNANT MELANOMA [None]
